FAERS Safety Report 6318190-2 (Version None)
Quarter: 2009Q3

REPORT INFORMATION
  Report Type: 
  Country: None (occurrence: None)
  Receive Date: 20090821
  Receipt Date: 20090817
  Transmission Date: 20100115
  Serious: Yes (Other)
  Sender: FDA-Public Use
  Company Number: B0585058A

PATIENT
  Sex: Male

DRUGS (8)
  1. PAXIL [Suspect]
     Indication: DEPRESSION
     Dosage: 10MG PER DAY
     Route: 048
     Dates: start: 20090605, end: 20090726
  2. TOFRANIL [Concomitant]
  3. AMARYL [Concomitant]
     Dosage: 1MG PER DAY
     Route: 048
     Dates: start: 20090602, end: 20090612
  4. AMARYL [Concomitant]
     Dosage: 3MG PER DAY
     Route: 048
     Dates: start: 20090713
  5. PLETAL [Concomitant]
     Dosage: 400MG PER DAY
     Route: 048
     Dates: start: 20090615
  6. BASEN [Concomitant]
     Dosage: 2.7MG PER DAY
     Route: 048
     Dates: start: 20090604
  7. TRYPTANOL [Concomitant]
     Route: 065
     Dates: start: 20090720, end: 20090726
  8. MAGMITT [Concomitant]
     Dosage: 2250MG PER DAY
     Route: 048
     Dates: start: 20090615

REACTIONS (4)
  - ANGER [None]
  - DISTURBANCE IN SEXUAL AROUSAL [None]
  - IMPULSE-CONTROL DISORDER [None]
  - MANIA [None]
